FAERS Safety Report 5761738-7 (Version None)
Quarter: 2008Q2

REPORT INFORMATION
  Report Type: 
  Country: None (occurrence: None)
  Receive Date: 20080603
  Receipt Date: 20080520
  Transmission Date: 20081010
  Serious: Yes (Hospitalization)
  Sender: FDA-Public Use
  Company Number: 2008AL005542

PATIENT
  Age: 68 Year
  Sex: Male

DRUGS (8)
  1. DIGOXIN [Suspect]
     Indication: HYPERTENSION
     Dosage: 0.125 MG ORAL
     Route: 048
  2. PROVACHOL [Concomitant]
  3. ZETIA [Concomitant]
  4. TRICOR [Concomitant]
  5. ENALAPRIL MALEATE [Concomitant]
  6. COREG [Concomitant]
  7. FUROSEMIDE [Concomitant]
  8. ASPIRIN [Concomitant]

REACTIONS (6)
  - ATRIAL FIBRILLATION [None]
  - CHEST PAIN [None]
  - DYSPNOEA [None]
  - FATIGUE [None]
  - MALAISE [None]
  - WEIGHT DECREASED [None]
